FAERS Safety Report 12464433 (Version 1)
Quarter: 2016Q2

REPORT INFORMATION
  Report Type: Spontaneous
  Country: GB (occurrence: GB)
  Receive Date: 20160614
  Receipt Date: 20160614
  Transmission Date: 20160815
  Serious: Yes (Hospitalization, Disabling, Other)
  Sender: FDA-Public Use
  Company Number: GB-TEVA-666601ACC

PATIENT
  Age: 29 Year
  Sex: Female

DRUGS (1)
  1. DOXYCYCLINE. [Suspect]
     Active Substance: DOXYCYCLINE
     Indication: SKIN INFECTION
     Route: 048
     Dates: start: 20160409, end: 20160423

REACTIONS (4)
  - Papilloedema [Recovering/Resolving]
  - Headache [Recovering/Resolving]
  - Intracranial pressure increased [Recovering/Resolving]
  - Visual field defect [Not Recovered/Not Resolved]

NARRATIVE: CASE EVENT DATE: 20160514
